FAERS Safety Report 19046915 (Version 1)
Quarter: 2021Q1

REPORT INFORMATION
  Report Type: Report from Study
  Country: US (occurrence: US)
  Receive Date: 20210323
  Receipt Date: 20210323
  Transmission Date: 20210420
  Serious: Yes (Other)
  Sender: FDA-Public Use
  Company Number: US-ASTRAZENECA-2021A151572

PATIENT
  Sex: Female
  Weight: 58.9 kg

DRUGS (11)
  1. CLINDAMYCIN. [Concomitant]
     Active Substance: CLINDAMYCIN
     Route: 061
  2. DAILY MULTIVITAMIN [Concomitant]
     Active Substance: VITAMINS
  3. VALTREX [Concomitant]
     Active Substance: VALACYCLOVIR HYDROCHLORIDE
  4. AMLODIPINE [Concomitant]
     Active Substance: AMLODIPINE BESYLATE
  5. TYLENOL [Concomitant]
     Active Substance: ACETAMINOPHEN
  6. RITALIN [Concomitant]
     Active Substance: METHYLPHENIDATE HYDROCHLORIDE
  7. DEXAMETHAONSE [Concomitant]
  8. PANTOPRAZOLE [Concomitant]
     Active Substance: PANTOPRAZOLE
  9. KOSELUGO [Suspect]
     Active Substance: SELUMETINIB
     Indication: NERVOUS SYSTEM NEOPLASM
     Route: 048
     Dates: start: 20201121, end: 202103
  10. MELATONIN [Concomitant]
     Active Substance: MELATONIN
  11. OXYCOODNE [Concomitant]

REACTIONS (1)
  - Disease progression [Unknown]
